FAERS Safety Report 9331808 (Version 1)
Quarter: 2013Q2

REPORT INFORMATION
  Report Type: Spontaneous
  Country: US (occurrence: None)
  Receive Date: 20130603
  Receipt Date: 20130603
  Transmission Date: 20140414
  Serious: Yes (Hospitalization, Other)
  Sender: FDA-Public Use
  Company Number: 2013P1006638

PATIENT
  Age: 73 Year
  Sex: Female
  Weight: 55.4 kg

DRUGS (13)
  1. PLAQUENIL [Suspect]
     Indication: SUPRAVENTRICULAR TACHYCARDIA
     Dates: start: 2000, end: 20121106
  2. PLAQUENIL [Suspect]
     Dates: start: 2000, end: 20121106
  3. SYNTHROID [Suspect]
     Indication: HYPOTHYROIDISM
  4. TREPROSTINIL [Suspect]
     Indication: PULMONARY ARTERIAL HYPERTENSION
     Route: 048
     Dates: start: 20110707, end: 20121005
  5. RESTASIS [Concomitant]
  6. LOMOTIL [Concomitant]
  7. ASA [Concomitant]
  8. SUPER B COMPLEX [Concomitant]
  9. VITAMIN D [Concomitant]
  10. OXYGEN THERAPY [Concomitant]
  11. BOSENTAN [Concomitant]
  12. PAXIL [Concomitant]
  13. DILTIAZEM [Concomitant]

REACTIONS (21)
  - Pulmonary arterial hypertension [None]
  - CREST syndrome [None]
  - Dyspnoea exertional [None]
  - Anaemia [None]
  - Supraventricular tachycardia [None]
  - Weight decreased [None]
  - Fall [None]
  - Blood glucose decreased [None]
  - Blood sodium decreased [None]
  - Dizziness [None]
  - Syncope [None]
  - Hypothyroidism [None]
  - Blood pressure decreased [None]
  - Heart rate increased [None]
  - Tricuspid valve incompetence [None]
  - Pericardial effusion [None]
  - Condition aggravated [None]
  - Pulmonary oedema [None]
  - Fatigue [None]
  - Vision blurred [None]
  - Lung disorder [None]
